FAERS Safety Report 18866752 (Version 2)
Quarter: 2021Q1

REPORT INFORMATION
  Report Type: Report from Study
  Country: CO (occurrence: CO)
  Receive Date: 20210209
  Receipt Date: 20210324
  Transmission Date: 20210420
  Serious: Yes (Other)
  Sender: FDA-Public Use
  Company Number: CO-JNJFOC-20210208273

PATIENT
  Age: 6 Decade
  Sex: Male
  Weight: 71 kg

DRUGS (4)
  1. REMICADE [Suspect]
     Active Substance: INFLIXIMAB
     Indication: ANKYLOSING SPONDYLITIS
     Route: 042
     Dates: start: 20110528
  2. REMICADE [Suspect]
     Active Substance: INFLIXIMAB
     Dosage: LAST APPLICATION OF THE DRUG INFLIXIMAB: 06/FEB/2020
     Route: 042
     Dates: start: 2020, end: 2020
  3. REMICADE [Suspect]
     Active Substance: INFLIXIMAB
     Route: 042
  4. LEVOTHYROXINE. [Concomitant]
     Active Substance: LEVOTHYROXINE

REACTIONS (4)
  - Thyroid cancer [Recovered/Resolved with Sequelae]
  - Accident [Unknown]
  - Arthralgia [Recovered/Resolved with Sequelae]
  - Psoriasis [Recovered/Resolved with Sequelae]

NARRATIVE: CASE EVENT DATE: 2017
